FAERS Safety Report 5951611-3 (Version None)
Quarter: 2008Q4

REPORT INFORMATION
  Report Type: 
  Country: None (occurrence: None)
  Receive Date: 20081113
  Receipt Date: 20081107
  Transmission Date: 20090506
  Serious: Yes (Hospitalization)
  Sender: FDA-Public Use
  Company Number: PHBS2008US06273

PATIENT
  Sex: Female

DRUGS (1)
  1. CYCLOSPORINE [Suspect]
     Indication: HEART TRANSPLANT

REACTIONS (7)
  - ABDOMINAL PAIN [None]
  - BILIARY DILATATION [None]
  - CHOLECYSTECTOMY [None]
  - CHOLEDOCHAL CYST [None]
  - CYST REMOVAL [None]
  - HEPATICOJEJUNOSTOMY [None]
  - VOMITING [None]
